FAERS Safety Report 12622675 (Version 1)
Quarter: 2016Q3

REPORT INFORMATION
  Report Type: Report from Study
  Country: CA (occurrence: CA)
  Receive Date: 20160804
  Receipt Date: 20160804
  Transmission Date: 20161109
  Serious: Yes (Hospitalization)
  Sender: FDA-Public Use
  Company Number: CA-HLSUS-2016-CA-000339

PATIENT
  Age: 67 Year
  Sex: Male

DRUGS (1)
  1. CLOZARIL [Suspect]
     Active Substance: CLOZAPINE
     Route: 048
     Dates: start: 20100803

REACTIONS (3)
  - Pallor [Unknown]
  - Speech disorder [Unknown]
  - Disorientation [Unknown]

NARRATIVE: CASE EVENT DATE: 201607
